FAERS Safety Report 5258501-2 (Version None)
Quarter: 2007Q1

REPORT INFORMATION
  Report Type: 
  Country: None (occurrence: None)
  Receive Date: 20061117
  Receipt Date: 20060320
  Transmission Date: 20070707
  Serious: Yes (Other)
  Sender: FDA-Public Use
  Company Number: US-JNJFOC-20051203970

PATIENT
  Age: 54 Year
  Sex: Female
  Weight: 56.246 kg

DRUGS (4)
  1. LEVAQUIN [Suspect]
     Indication: SINUSITIS
     Dosage: 500 MG, 1 IN 1 DAY, ORAL
     Route: 048
     Dates: start: 20051206, end: 20051210
  2. KYTRIL [Concomitant]
  3. ZELNORM [Concomitant]
  4. LUNESTA (ALL OTHER THERAPEUTIC PRODUCTS) [Concomitant]

REACTIONS (3)
  - DYSSTASIA [None]
  - PAIN [None]
  - TENDON RUPTURE [None]
